FAERS Safety Report 8510807-7 (Version None)
Quarter: 2012Q3

REPORT INFORMATION
  Report Type: 
  Country: None (occurrence: None)
  Receive Date: 20120716
  Receipt Date: 20120710
  Transmission Date: 20120928
  Serious: No
  Sender: FDA-Public Use
  Company Number: US-PFIZER INC-2012147048

PATIENT
  Sex: Male
  Weight: 87 kg

DRUGS (5)
  1. FLONASE [Concomitant]
     Indication: HYPERSENSITIVITY
     Dosage: 50 UG, UNK
     Dates: start: 20120510
  2. MOTRIN [Concomitant]
     Indication: PAIN
     Dosage: 600 MG, UNK
     Dates: start: 20120510
  3. CHANTIX [Suspect]
     Indication: SMOKING CESSATION THERAPY
     Dosage: 0.5 MG, 1X/DAY
     Route: 048
     Dates: start: 20120601, end: 20120601
  4. CHANTIX [Suspect]
     Dosage: 0.5 MG, UNK
     Route: 048
     Dates: start: 20120601, end: 20120618
  5. KETOCONAZOLE [Concomitant]
     Indication: SEBORRHOEIC DERMATITIS
     Dosage: UNK
     Dates: start: 20120510

REACTIONS (1)
  - VISION BLURRED [None]
